FAERS Safety Report 23887217 (Version 2)
Quarter: 2024Q2

REPORT INFORMATION
  Report Type: Spontaneous
  Country: NL (occurrence: NL)
  Receive Date: 20240523
  Receipt Date: 20240607
  Transmission Date: 20240716
  Serious: Yes (Other)
  Sender: FDA-Public Use
  Company Number: NL-TEVA-VS-3200340

PATIENT
  Age: 67 Year
  Sex: Male

DRUGS (1)
  1. OLMESARTAN [Suspect]
     Active Substance: OLMESARTAN
     Indication: Hypertension
     Dosage: OLMESARTAN-MEDOXOMIL
     Route: 065

REACTIONS (3)
  - Aplastic anaemia [Recovered/Resolved]
  - Intentional overdose [Unknown]
  - Thrombocytopenia [Recovered/Resolved]
